FAERS Safety Report 10010960 (Version 1)
Quarter: 2014Q1

REPORT INFORMATION
  Report Type: Spontaneous
  Country: GB (occurrence: None)
  Receive Date: 20140312
  Receipt Date: 20140312
  Transmission Date: 20141002
  Serious: Yes (Life-Threatening)
  Sender: FDA-Public Use
  Company Number: COL_15408_2014

PATIENT
  Age: 74 Year
  Sex: Male
  Weight: 77 kg

DRUGS (2)
  1. CHLORHEXIDINE [Suspect]
     Indication: PREOPERATIVE CARE
     Route: 061
     Dates: start: 20140212, end: 20140212
  2. UNSPECIFIED MEDICATION [Concomitant]

REACTIONS (2)
  - Anaphylactic reaction [None]
  - No therapeutic response [None]
